FAERS Safety Report 7632762-4 (Version None)
Quarter: 2011Q3

REPORT INFORMATION
  Report Type: 
  Country: None (occurrence: None)
  Receive Date: 20110725
  Receipt Date: 20110104
  Transmission Date: 20111222
  Serious: No
  Sender: FDA-Public Use
  Company Number: US-BRISTOL-MYERS SQUIBB COMPANY-15470495

PATIENT
  Age: 73 Year
  Sex: Female

DRUGS (6)
  1. METOPROLOL TARTRATE [Concomitant]
  2. GLIPIZIDE [Concomitant]
  3. CRESTOR [Concomitant]
  4. LISINOPRIL [Concomitant]
  5. COUMADIN [Suspect]
  6. FEXOFENADINE HCL [Concomitant]
     Indication: HYPERSENSITIVITY

REACTIONS (1)
  - HEADACHE [None]
